FAERS Safety Report 7474059-1 (Version None)
Quarter: 2011Q2

REPORT INFORMATION
  Report Type: 
  Country: None (occurrence: None)
  Receive Date: 20110511
  Receipt Date: 20110506
  Transmission Date: 20111010
  Serious: Yes (Hospitalization)
  Sender: FDA-Public Use
  Company Number: PHHY2011ES38580

PATIENT
  Age: 68 Year
  Sex: Female

DRUGS (3)
  1. ESCITALOPRAM [Interacting]
     Indication: DEPRESSION
     Dosage: 30 MG DAILY
     Route: 048
     Dates: start: 20110201, end: 20110302
  2. HYDROCHLOROTHIAZIDE [Interacting]
     Indication: HYPERTENSION
     Dosage: 50 MG, UNK
     Route: 048
     Dates: start: 20070101, end: 20110308
  3. DIOVAN [Suspect]
     Indication: HYPERTENSION
     Dosage: 160 MG, UNK
     Route: 048
     Dates: start: 20070101, end: 20110308

REACTIONS (2)
  - HYPONATRAEMIA [None]
  - DRUG INTERACTION [None]
